FAERS Safety Report 14355291 (Version 6)
Quarter: 2018Q2

REPORT INFORMATION
  Report Type: Spontaneous
  Country: PT (occurrence: PT)
  Receive Date: 20180105
  Receipt Date: 20180505
  Transmission Date: 20180711
  Serious: Yes (Disabling)
  Sender: FDA-Public Use
  Company Number: PT-AUROBINDO-AUR-APL-2018-000416

PATIENT
  Age: 78 Year
  Sex: Female
  Weight: 68 kg

DRUGS (25)
  1. TRAMADOL. [Suspect]
     Active Substance: TRAMADOL
     Indication: OSTEOARTHRITIS
     Dosage: 1 DF
     Route: 042
     Dates: start: 20170810, end: 20170817
  2. FOSAVANCE [Concomitant]
     Active Substance: ALENDRONATE SODIUM\CHOLECALCIFEROL
     Route: 048
  3. PARACETAMOL TABLET [Suspect]
     Active Substance: ACETAMINOPHEN
     Indication: OSTEOARTHRITIS
     Dosage: 1 DF
     Route: 042
     Dates: start: 20170810, end: 20170817
  4. NOLOTIL                            /00473101/ [Suspect]
     Active Substance: METAMIZOLE\PROPOXYPHENE
     Indication: OSTEOPOROSIS PROPHYLAXIS
     Dosage: 1 DOSAGE FORM
     Route: 042
     Dates: start: 20170810, end: 20170816
  5. HYTACAND [Concomitant]
     Active Substance: CANDESARTAN CILEXETIL\HYDROCHLOROTHIAZIDE
     Indication: HYPERTENSION
     Dosage: 1 DF, UNK
     Route: 048
     Dates: start: 1991
  6. PARACETAMOL TABLET [Suspect]
     Active Substance: ACETAMINOPHEN
     Dosage: AS NECESSARY
     Route: 048
     Dates: start: 201708, end: 20170823
  7. LISALGIL [Suspect]
     Active Substance: METAMIZOLE SODIUM
     Indication: OSTEOPOROSIS PROPHYLAXIS
     Dosage: 1 DOSAGE FORM
     Route: 042
     Dates: start: 20170810, end: 20170815
  8. FOSAVANCE [Concomitant]
     Active Substance: ALENDRONATE SODIUM\CHOLECALCIFEROL
     Indication: OSTEOPOROSIS PROPHYLAXIS
     Dosage: 1 COMPRIMIDO/SEMANA
     Route: 048
  9. FOSAVANCE [Concomitant]
     Active Substance: ALENDRONATE SODIUM\CHOLECALCIFEROL
     Route: 048
  10. DIAMICRON [Concomitant]
     Active Substance: GLICLAZIDE
     Indication: GLUCOSE TOLERANCE IMPAIRED
     Dosage: FORMULATION: MODIFIED-RELEASE TABLET
     Route: 048
     Dates: start: 2015
  11. PARACETAMOL TABLET [Suspect]
     Active Substance: ACETAMINOPHEN
     Dosage: 1 G, UNK
     Route: 048
     Dates: start: 20170824, end: 20170920
  12. TRAMADOL. [Suspect]
     Active Substance: TRAMADOL
     Dosage: 200 MILLIGRAM
     Route: 048
     Dates: start: 20170824, end: 20171003
  13. TRIDURAL [Suspect]
     Active Substance: TRAMADOL HYDROCHLORIDE
     Indication: OSTEOARTHRITIS
     Dosage: 200 MILLIGRAM
     Route: 048
     Dates: start: 20170824, end: 20171003
  14. OMEPRAZOLE. [Concomitant]
     Active Substance: OMEPRAZOLE
     Dosage: 20 MILLIGRAM
     Route: 048
     Dates: start: 20080101
  15. TRAMADOL. [Suspect]
     Active Substance: TRAMADOL
     Indication: OSTEOARTHRITIS
     Dosage: 1 DF, UNK
     Route: 048
     Dates: start: 20170817, end: 20170824
  16. NOLOTIL                            /00473101/ [Suspect]
     Active Substance: METAMIZOLE\PROPOXYPHENE
     Indication: OSTEOARTHRITIS
  17. OMEPRAZOLE. [Concomitant]
     Active Substance: OMEPRAZOLE
     Indication: PROPHYLAXIS AGAINST GASTROINTESTINAL ULCER
     Dosage: 20 MILLIGRAM
     Route: 048
     Dates: start: 2008
  18. PARACETAMOL TABLET [Suspect]
     Active Substance: ACETAMINOPHEN
     Dosage: 1 GRAM, AS NECESSARY
     Route: 048
     Dates: start: 20170817, end: 20170823
  19. TRIDURAL [Suspect]
     Active Substance: TRAMADOL HYDROCHLORIDE
     Dosage: TABLET, EXTENDED RELEASE
     Route: 048
     Dates: start: 20170810, end: 20171003
  20. AMLODIPINE [Concomitant]
     Active Substance: AMLODIPINE BESYLATE
     Indication: HYPERTENSION
     Dosage: 5 MILLIGRAM
     Route: 048
     Dates: start: 2012
  21. TRAMADOL. [Suspect]
     Active Substance: TRAMADOL
     Route: 048
     Dates: start: 201708, end: 20171003
  22. LISALGIL [Suspect]
     Active Substance: METAMIZOLE SODIUM
     Indication: OSTEOARTHRITIS
     Dosage: ()
     Route: 042
     Dates: start: 20170810, end: 20170817
  23. CARTIA                             /00002701/ [Concomitant]
     Active Substance: ASPIRIN
     Indication: PROPHYLAXIS
     Dosage: 100 MG EM DIAS ALTERNADOS
     Route: 048
     Dates: start: 1992
  24. PARACETAMOL SANDOZ [Suspect]
     Active Substance: ACETAMINOPHEN
     Indication: OSTEOARTHRITIS
     Dosage: 1 GRAM
     Dates: start: 20170824, end: 20170920
  25. TENORMIN [Concomitant]
     Active Substance: ATENOLOL
     Indication: HYPERTENSION
     Dosage: 50 MILLIGRAM
     Route: 048
     Dates: start: 1991

REACTIONS (12)
  - Constipation [Recovered/Resolved]
  - Flatulence [Recovered/Resolved]
  - Hallucination, visual [Recovered/Resolved]
  - Micturition frequency decreased [Recovered/Resolved]
  - Tremor [Recovered/Resolved]
  - Cachexia [Recovered/Resolved]
  - Heart rate increased [Recovered/Resolved]
  - Abdominal distension [Recovered/Resolved]
  - Decreased appetite [Recovered/Resolved]
  - Nausea [Recovered/Resolved]
  - Diarrhoea [Recovered/Resolved]
  - Vomiting [Recovered/Resolved]

NARRATIVE: CASE EVENT DATE: 20170801
